FAERS Safety Report 8380306 (Version 2)
Quarter: 2013Q1

REPORT INFORMATION
  Report Type: Report from Study
  Country: PR (occurrence: PR)
  Receive Date: 20120129
  Receipt Date: 20130130
  Transmission Date: 20140127
  Serious: No
  Sender: FDA-Public Use
  Company Number: PR-ABBOTT-11P-131-0887116-00

PATIENT
  Sex: Female
  Weight: 51.76 kg

DRUGS (9)
  1. HUMIRA 40 MG/0.8 ML PEN [Suspect]
     Indication: PRODUCT USED FOR UNKNOWN INDICATION
     Route: 058
     Dates: start: 2005, end: 2011
  2. HUMIRA 40 MG/0.8 ML PEN [Suspect]
     Route: 058
     Dates: start: 201202
  3. METHOTREXATE [Concomitant]
     Indication: RHEUMATOID ARTHRITIS
  4. EVISTA [Concomitant]
     Indication: OSTEOPENIA
     Route: 048
     Dates: start: 201206
  5. CALCIUM [Concomitant]
     Indication: OSTEOPENIA
     Route: 048
     Dates: start: 201206
  6. SINGULAIR [Concomitant]
     Indication: PRODUCT USED FOR UNKNOWN INDICATION
     Route: 048
  7. NEURONTIN [Concomitant]
     Indication: PRODUCT USED FOR UNKNOWN INDICATION
     Route: 048
  8. FLEXERIL [Concomitant]
     Indication: PRODUCT USED FOR UNKNOWN INDICATION
     Dosage: 1 TABLET TWICE A DAY AS NEEDED
     Route: 048
  9. TRAMADOL [Concomitant]
     Indication: PRODUCT USED FOR UNKNOWN INDICATION
     Dosage: 1 TABLET TWICE A DAY AS NEEDED
     Route: 048

REACTIONS (3)
  - Osteopenia [Not Recovered/Not Resolved]
  - Nasopharyngitis [Recovered/Resolved]
  - Allergic sinusitis [Not Recovered/Not Resolved]
